FAERS Safety Report 9350044 (Version 1)
Quarter: 2013Q2

REPORT INFORMATION
  Report Type: Report from Study
  Country: NL (occurrence: NL)
  Receive Date: 20130615
  Receipt Date: 20130615
  Transmission Date: 20140414
  Serious: Yes (Hospitalization)
  Sender: FDA-Public Use
  Company Number: NL-B.I. PHARMACEUTICALS,INC./RIDGEFIELD-2013-NL-00437NL

PATIENT
  Age: 56 Year
  Sex: Female
  Weight: 75 kg

DRUGS (8)
  1. PERSANTIN RETARD 150 [Suspect]
     Indication: TRANSIENT ISCHAEMIC ATTACK
     Dosage: 150 MG
     Dates: start: 20130426, end: 20130503
  2. PERSANTIN RETARD 150 [Suspect]
     Dosage: 300 MG
     Dates: start: 20130503
  3. MICARDIS 40 MG [Suspect]
     Dosage: 40 MG
     Dates: start: 2001
  4. LISINOPRIL [Concomitant]
     Dosage: 10 MG
     Dates: start: 20130412
  5. OMEPRAZOL [Concomitant]
     Dosage: 40 MG
     Dates: start: 201210
  6. ASCAL BRISPER CARDIO-NEURO [Concomitant]
     Dosage: 100 MG
     Dates: start: 20130326
  7. SIMVASTATINE [Concomitant]
     Dosage: 40 MG
     Dates: start: 2001
  8. VENTOLIN DISKUS [Concomitant]
     Dosage: 400 MCG
     Route: 055
     Dates: start: 201304

REACTIONS (1)
  - Chest discomfort [Recovered/Resolved]
